FAERS Safety Report 24195894 (Version 2)
Quarter: 2024Q3

REPORT INFORMATION
  Report Type: Spontaneous
  Country: US (occurrence: US)
  Receive Date: 20240809
  Receipt Date: 20240827
  Transmission Date: 20241017
  Serious: Yes (Other)
  Sender: AMERICAN REGENT
  Company Number: US-AMERICAN REGENT INC-2024003010

PATIENT
  Age: 36 Year
  Sex: Female
  Weight: 78 kg

DRUGS (3)
  1. VENOFER [Suspect]
     Active Substance: IRON SUCROSE
     Indication: Nephrogenic anaemia
     Dosage: UNK, SINGLE
     Route: 042
     Dates: start: 20240314, end: 20240314
  2. CYANOCOBALAMIN [Concomitant]
     Active Substance: CYANOCOBALAMIN
     Indication: Vitamin B12 deficiency
     Dosage: 1000 MCG/ML, ONCE A MONTH
     Route: 065
     Dates: start: 20240304
  3. FERROUS SULFATE [Concomitant]
     Active Substance: FERROUS SULFATE
     Indication: Iron deficiency
     Dosage: 160 MILLIGRAM, QD
     Route: 065
     Dates: start: 20240403

REACTIONS (4)
  - Delirium [Recovered/Resolved]
  - Rash [Recovered/Resolved]
  - Presyncope [Recovered/Resolved]
  - Peripheral swelling [Recovered/Resolved]

NARRATIVE: CASE EVENT DATE: 20240314
